FAERS Safety Report 5121566-2 (Version None)
Quarter: 2006Q4

REPORT INFORMATION
  Report Type: 
  Country: None (occurrence: None)
  Receive Date: 20061006
  Receipt Date: 20060915
  Transmission Date: 20070319
  Serious: Yes (Other)
  Sender: FDA-Public Use
  Company Number: ITWYE950218SEP06

PATIENT

DRUGS (3)
  1. ENBREL [Suspect]
     Indication: RHEUMATOID ARTHRITIS
     Dosage: NOT PROVIDED
     Route: 058
     Dates: end: 20060101
  2. ENBREL [Suspect]
     Dosage: NOT PROVIDED
     Dates: start: 20060901
  3. METHOTREXATE [Concomitant]
     Indication: RHEUMATOID ARTHRITIS
     Dosage: LOW DOSAGE

REACTIONS (1)
  - BLOOD ALKALINE PHOSPHATASE INCREASED [None]
